FAERS Safety Report 6605046 (Version 24)
Quarter: 2014Q1

REPORT INFORMATION
  Report Type: Spontaneous
  Country: US (occurrence: US)
  Receive Date: 20080403
  Receipt Date: 20140203
  Transmission Date: 20141002
  Serious: Yes (Hospitalization, Other)
  Sender: FDA-Public Use
  Company Number: PHEH2008US03140

PATIENT
  Age: 64 Year
  Sex: Male

DRUGS (75)
  1. ZOMETA [Suspect]
     Route: 041
     Dates: start: 200309, end: 200812
  2. MORPHINE SULFATE [Concomitant]
  3. LORAZEPAM [Concomitant]
  4. AZOPT [Concomitant]
  5. AMILORIDE HYDROCHLORIDE [Concomitant]
  6. MS CONTIN [Concomitant]
  7. ZOFRAN [Concomitant]
  8. FOLIC ACID [Concomitant]
  9. SANDOSTATIN LAR [Concomitant]
  10. CALCIUM WITH VITAMIN D [Concomitant]
  11. FORTICAL /KOR/ [Concomitant]
  12. RITALIN [Concomitant]
  13. CLARITIN [Concomitant]
  14. PEPCID AC [Concomitant]
  15. FLONASE [Concomitant]
  16. AMBIEN [Concomitant]
  17. ARANESP [Concomitant]
  18. COMPAZINE [Concomitant]
  19. MIACALCIN [Concomitant]
  20. FOLVITE [Concomitant]
  21. METHADONE [Concomitant]
  22. SANDOSTATIN [Concomitant]
  23. VITAMIN B12 [Concomitant]
     Dosage: 1000 MG, QMO
     Route: 065
  24. LOVENOX [Concomitant]
  25. QUADRAMET [Concomitant]
  26. CEPHALEXIN [Concomitant]
  27. INDOMETHACIN [Concomitant]
  28. PROCRIT                            /00909301/ [Concomitant]
  29. ZOLPIDEM [Concomitant]
  30. NORVASC                                 /DEN/ [Concomitant]
  31. PRILOSEC [Concomitant]
  32. OXYCONTIN [Concomitant]
  33. LOMOTIL [Concomitant]
  34. NIACIN [Concomitant]
  35. ZOLOFT (SERTRALINE HYDROCHLORIDE) [Concomitant]
  36. QUESTRAN [Concomitant]
  37. EPOGEN [Concomitant]
  38. CHLORHEXIDINE [Concomitant]
  39. DEXAMETHASONE [Concomitant]
     Route: 061
  40. INFLUENZA VACCINE [Concomitant]
     Dates: start: 20051001
  41. ALLEGRA [Concomitant]
  42. VIOXX [Concomitant]
  43. COLCHICINE [Concomitant]
  44. VITAMIN C [Concomitant]
  45. COENZYME Q10 [Concomitant]
  46. OMEGA 3 [Concomitant]
  47. VITAMIN B6 [Concomitant]
  48. ZINC [Concomitant]
  49. VITAMIN E [Concomitant]
  50. SELENIUM [Concomitant]
  51. PROTONIX [Concomitant]
  52. NEURONTIN [Concomitant]
  53. COUMADIN [Concomitant]
  54. FAMCICLOVIR [Concomitant]
  55. FLUCONAZOLE [Concomitant]
  56. LANSOPRAZOLE [Concomitant]
  57. DICYCLOMINE [Concomitant]
  58. LONOX [Concomitant]
  59. ANZEMET [Concomitant]
  60. IBUPROFEN [Concomitant]
  61. POTASSIUM CHLORIDE [Concomitant]
  62. THORAZINE [Concomitant]
  63. ROCEPHIN [Concomitant]
  64. VANCOMYCIN [Concomitant]
  65. BENTYL [Concomitant]
  66. ZOVIRAX [Concomitant]
  67. MULTIVITAMINS [Concomitant]
  68. CLINDAMYCIN [Concomitant]
  69. MULTIVITAMINS WITH MINERALS [Concomitant]
  70. CIMETIDINE [Concomitant]
  71. PROVIGIL [Concomitant]
  72. ALLOPURINOL [Concomitant]
  73. AZITHROMYCIN [Concomitant]
  74. MEDROL [Concomitant]
  75. B COMPLEX [Concomitant]

REACTIONS (107)
  - Cellulitis [Unknown]
  - Gout [Unknown]
  - Lymphadenopathy [Unknown]
  - Chondrocalcinosis pyrophosphate [Unknown]
  - Carcinoid tumour of the small bowel [Unknown]
  - Atelectasis [Unknown]
  - Pneumothorax [Unknown]
  - Pleural effusion [Unknown]
  - Osteonecrosis of jaw [Unknown]
  - Pain [Unknown]
  - Infection [Unknown]
  - Scar [Unknown]
  - Injury [Unknown]
  - Emotional distress [Unknown]
  - Anxiety [Unknown]
  - Physical disability [Unknown]
  - Renal failure acute [Unknown]
  - Haematuria [Unknown]
  - Superior vena cava syndrome [Unknown]
  - Metastases to bone [Unknown]
  - Bone lesion [Unknown]
  - Stress fracture [Unknown]
  - Metastases to liver [Unknown]
  - Metastases to spine [Unknown]
  - Metastases to thorax [Unknown]
  - Gait disturbance [Unknown]
  - Foot fracture [Unknown]
  - Plantar fasciitis [Unknown]
  - Carcinoid syndrome [Unknown]
  - Anaemia of malignant disease [Unknown]
  - Osteoporosis [Unknown]
  - Cholelithiasis [Unknown]
  - Biliary dilatation [Unknown]
  - Mental status changes [Unknown]
  - Enthesopathy [Unknown]
  - Tendon disorder [Unknown]
  - Bone marrow oedema [Unknown]
  - Chondromalacia [Unknown]
  - Synovial cyst [Unknown]
  - Effusion [Unknown]
  - Malnutrition [Unknown]
  - Hypoalbuminaemia [Unknown]
  - Hypertension [Unknown]
  - Gastrooesophageal reflux disease [Unknown]
  - Osteopenia [Unknown]
  - Leukopenia [Unknown]
  - Venous occlusion [Unknown]
  - Pulmonary granuloma [Unknown]
  - Osteosclerosis [Unknown]
  - Scoliosis [Unknown]
  - Lung consolidation [Unknown]
  - Bone pain [Unknown]
  - Arthralgia [Unknown]
  - Hepatic lesion [Unknown]
  - Neuroendocrine tumour [Unknown]
  - Pancreatic neuroendocrine tumour metastatic [Unknown]
  - Second primary malignancy [Unknown]
  - Thrombocytopenia [Unknown]
  - Diarrhoea [Unknown]
  - Dehydration [Unknown]
  - Dizziness [Unknown]
  - Abdominal pain [Unknown]
  - Vomiting [Unknown]
  - Urethral obstruction [Unknown]
  - Metabolic acidosis [Unknown]
  - Metabolic encephalopathy [Unknown]
  - Depression [Unknown]
  - Hyperchloraemia [Unknown]
  - Balance disorder [Unknown]
  - Malabsorption [Unknown]
  - Contusion [Unknown]
  - Pancytopenia [Unknown]
  - Anaemia [Unknown]
  - Neutropenia [Unknown]
  - Cough [Unknown]
  - Anaemia vitamin B12 deficiency [Unknown]
  - Hypocalcaemia [Unknown]
  - Venous thrombosis [Unknown]
  - Haemorrhoids [Unknown]
  - Hemiparesis [Unknown]
  - Dyspnoea [Unknown]
  - Cyanosis [Unknown]
  - Headache [Unknown]
  - Electrocardiogram QT prolonged [Unknown]
  - Small intestinal obstruction [Unknown]
  - Neutrophil count decreased [Unknown]
  - Haemoglobin decreased [Unknown]
  - Haematocrit decreased [Unknown]
  - Oedema peripheral [Unknown]
  - Rash generalised [Unknown]
  - Intraocular pressure test abnormal [Unknown]
  - Pruritus [Unknown]
  - Haemorrhage subcutaneous [Unknown]
  - Seasonal allergy [Unknown]
  - Burning mouth syndrome [Unknown]
  - Obsessive-compulsive disorder [Unknown]
  - Flushing [Unknown]
  - Hyperhidrosis [Unknown]
  - Gingival pain [Recovering/Resolving]
  - Phimosis [Unknown]
  - Skin oedema [Unknown]
  - Vertigo [Unknown]
  - Dysarthria [Unknown]
  - Faecal incontinence [Unknown]
  - Varices oesophageal [Unknown]
  - Abdominal discomfort [Unknown]
  - Dyspepsia [Unknown]
